FAERS Safety Report 12747426 (Version 2)
Quarter: 2017Q1

REPORT INFORMATION
  Report Type: Spontaneous
  Country: US (occurrence: US)
  Receive Date: 20160915
  Receipt Date: 20170206
  Transmission Date: 20170428
  Serious: No
  Sender: FDA-Public Use
  Company Number: US-JAZZ-2016-US-009760

PATIENT
  Age: 44 Year
  Sex: Female
  Weight: 132.88 kg

DRUGS (35)
  1. NICOTROL NS [Concomitant]
  2. CHANTIX [Concomitant]
     Active Substance: VARENICLINE TARTRATE
  3. SINGULAIR [Concomitant]
     Active Substance: MONTELUKAST SODIUM
  4. ROZEREM [Concomitant]
     Active Substance: RAMELTEON
  5. XYREM [Suspect]
     Active Substance: SODIUM OXYBATE
     Dosage: 2.25 G, BID
     Route: 048
     Dates: start: 201512, end: 201512
  6. LAMICTAL [Concomitant]
     Active Substance: LAMOTRIGINE
  7. XYREM [Suspect]
     Active Substance: SODIUM OXYBATE
     Indication: NARCOLEPSY
     Dosage: 4 G, BID
     Route: 048
     Dates: start: 200712, end: 201206
  8. XYREM [Suspect]
     Active Substance: SODIUM OXYBATE
     Dosage: DOSE ADJUSTMENTS
     Route: 048
     Dates: start: 2015, end: 2015
  9. ABILIFY [Concomitant]
     Active Substance: ARIPIPRAZOLE
     Indication: BIPOLAR DISORDER
  10. MIRENA [Concomitant]
     Active Substance: LEVONORGESTREL
  11. MIRAPEX [Concomitant]
     Active Substance: PRAMIPEXOLE DIHYDROCHLORIDE
  12. REGLAN [Concomitant]
     Active Substance: METOCLOPRAMIDE HYDROCHLORIDE
  13. CONCERTA [Concomitant]
     Active Substance: METHYLPHENIDATE HYDROCHLORIDE
  14. IBUPROFEN. [Concomitant]
     Active Substance: IBUPROFEN
  15. ALBUTEROL. [Concomitant]
     Active Substance: ALBUTEROL
  16. PREVACID [Concomitant]
     Active Substance: LANSOPRAZOLE
  17. EFFEXOR [Concomitant]
     Active Substance: VENLAFAXINE HYDROCHLORIDE
     Indication: BIPOLAR DISORDER
  18. ADDERALL [Concomitant]
     Active Substance: AMPHETAMINE ASPARTATE\AMPHETAMINE SULFATE\DEXTROAMPHETAMINE SACCHARATE\DEXTROAMPHETAMINE SULFATE
     Indication: BIPOLAR DISORDER
  19. TRIAZOLAM. [Concomitant]
     Active Substance: TRIAZOLAM
     Indication: SLEEP DISORDER
  20. COLACE [Concomitant]
     Active Substance: DOCUSATE SODIUM
  21. ADVAIR HFA [Concomitant]
     Active Substance: FLUTICASONE PROPIONATE\SALMETEROL XINAFOATE
  22. LATUDA [Concomitant]
     Active Substance: LURASIDONE HYDROCHLORIDE
  23. ALBUTEROL SULFATE HFA [Concomitant]
     Active Substance: ALBUTEROL SULFATE
  24. BENADRYL ALLERGY [Concomitant]
     Active Substance: DIPHENHYDRAMINE HYDROCHLORIDE
  25. PROAIR HFA [Concomitant]
     Active Substance: ALBUTEROL SULFATE
  26. DESIPRAMINE [Concomitant]
     Active Substance: DESIPRAMINE
  27. REMERON [Concomitant]
     Active Substance: MIRTAZAPINE
  28. ZOCOR [Concomitant]
     Active Substance: SIMVASTATIN
  29. XYREM [Suspect]
     Active Substance: SODIUM OXYBATE
     Dosage: DOSE ADJUSTMENTS
     Route: 048
  30. XYREM [Suspect]
     Active Substance: SODIUM OXYBATE
     Dosage: 4.5 G, BID
     Route: 048
     Dates: start: 201401, end: 2015
  31. XYREM [Suspect]
     Active Substance: SODIUM OXYBATE
     Dosage: 4.5 G, BID
     Route: 048
     Dates: start: 201512
  32. XANAX [Concomitant]
     Active Substance: ALPRAZOLAM
     Indication: BIPOLAR DISORDER
  33. DIOVAN [Concomitant]
     Active Substance: VALSARTAN
     Indication: BLOOD PRESSURE MEASUREMENT
  34. VENLAFAXINE HCL [Concomitant]
     Active Substance: VENLAFAXINE HYDROCHLORIDE
  35. RANITIDINE. [Concomitant]
     Active Substance: RANITIDINE

REACTIONS (4)
  - Menorrhagia [Recovered/Resolved]
  - Obesity [Unknown]
  - Hormone level abnormal [Recovered/Resolved]
  - Blood oestrogen increased [Unknown]

NARRATIVE: CASE EVENT DATE: 201506
